FAERS Safety Report 5239899-8 (Version None)
Quarter: 2007Q1

REPORT INFORMATION
  Report Type: 
  Country: None (occurrence: None)
  Receive Date: 20070216
  Receipt Date: 20070208
  Transmission Date: 20070707
  Serious: Yes (Hospitalization)
  Sender: FDA-Public Use
  Company Number: FR-PFIZER INC-2007011308

PATIENT
  Sex: Male
  Weight: 67 kg

DRUGS (7)
  1. SOLU-MEDROL [Suspect]
     Route: 042
  2. AVASTIN [Suspect]
     Route: 042
  3. ZANTAC [Concomitant]
     Route: 042
  4. TAXOL [Concomitant]
     Route: 042
     Dates: start: 20060713
  5. KYTRIL [Concomitant]
     Route: 042
     Dates: start: 20060713
  6. CARBOPLATIN [Concomitant]
     Route: 042
     Dates: start: 20060713
  7. POLARAMINE [Concomitant]
     Route: 065
     Dates: start: 20060713

REACTIONS (4)
  - ALANINE AMINOTRANSFERASE INCREASED [None]
  - ASPARTATE AMINOTRANSFERASE INCREASED [None]
  - CHOLESTASIS [None]
  - CONDITION AGGRAVATED [None]
